FAERS Safety Report 4618927-4 (Version None)
Quarter: 2005Q2

REPORT INFORMATION
  Report Type: 
  Country: None (occurrence: None)
  Receive Date: 20050302
  Receipt Date: 20040420
  Transmission Date: 20051028
  Serious: Yes (Hospitalization, Other)
  Sender: FDA-Public Use
  Company Number: 200417687BWH

PATIENT
  Age: 9 Year
  Sex: Female
  Weight: 22.5 kg

DRUGS (8)
  1. TRASYLOL [Suspect]
     Indication: SURGERY
     Dosage: 1.0 ML, TOTAL DAILY, INTRAVENOUS;90 ML, TOTAL DAILY, INTRAVENOUS; 90 ML ONCE, INTRAVENOUS
     Route: 042
     Dates: start: 20040421
  2. TRASYLOL [Suspect]
     Indication: SURGERY
     Dosage: 1.0 ML, TOTAL DAILY, INTRAVENOUS;90 ML, TOTAL DAILY, INTRAVENOUS; 90 ML ONCE, INTRAVENOUS
     Route: 042
     Dates: start: 20040421
  3. TRASYLOL [Suspect]
     Indication: SURGERY
     Dosage: 1.0 ML, TOTAL DAILY, INTRAVENOUS;90 ML, TOTAL DAILY, INTRAVENOUS; 90 ML ONCE, INTRAVENOUS
     Route: 042
     Dates: start: 20040421
  4. CEFUROXIME [Suspect]
     Dosage: ONCE, INTRAVENOUS
     Route: 042
     Dates: start: 20040421
  5. CEFUROXIME [Suspect]
     Dosage: ONCE, INTRAVENOUS
     Route: 042
     Dates: start: 20040421
  6. NEOSPORIN [Concomitant]
  7. VERSED [Concomitant]
  8. PANCURONIUM [Concomitant]

REACTIONS (4)
  - ANAPHYLACTIC REACTION [None]
  - BLOOD PRESSURE DECREASED [None]
  - BRONCHOSPASM [None]
  - RASH GENERALISED [None]
